FAERS Safety Report 19987029 (Version 7)
Quarter: 2022Q1

REPORT INFORMATION
  Report Type: Spontaneous
  Country: CA (occurrence: CA)
  Receive Date: 20211023
  Receipt Date: 20220324
  Transmission Date: 20220423
  Serious: Yes (Other)
  Sender: FDA-Public Use
  Company Number: CA-CELLTRION INC.-2021CA012905

PATIENT

DRUGS (10)
  1. INFLECTRA [Suspect]
     Active Substance: INFLIXIMAB-DYYB
     Indication: Colitis ulcerative
     Dosage: 1 DF
  2. INFLECTRA [Suspect]
     Active Substance: INFLIXIMAB-DYYB
     Dosage: 5MG/KG 0, 2, 6  THEN EVERY 8 WEEKS
     Route: 042
     Dates: start: 20210901
  3. INFLECTRA [Suspect]
     Active Substance: INFLIXIMAB-DYYB
     Dosage: 5MG/KG 0, 2, 6  THEN EVERY 8 WEEKS
     Route: 042
     Dates: start: 20210915
  4. INFLECTRA [Suspect]
     Active Substance: INFLIXIMAB-DYYB
     Dosage: 0, 2, 6 THEN EVERY 8 WEEKS
     Route: 042
     Dates: start: 20211013
  5. INFLECTRA [Suspect]
     Active Substance: INFLIXIMAB-DYYB
     Dosage: 0, 2, 6 WEEKS, THEN EVERY 8 WEEKS
     Route: 042
     Dates: start: 20211013
  6. INFLECTRA [Suspect]
     Active Substance: INFLIXIMAB-DYYB
     Dosage: 5 MG/KG ,0, 2, 6 THEN EVERY 8 WEEKS
     Route: 042
     Dates: start: 20211208
  7. INFLECTRA [Suspect]
     Active Substance: INFLIXIMAB-DYYB
     Dosage: 5 MG/KG ,0, 2, 6  THEN EVERY 8 WEEKS (INCOMPLETE INFUSION)
     Route: 042
     Dates: start: 20220202
  8. INFLECTRA [Suspect]
     Active Substance: INFLIXIMAB-DYYB
     Dosage: 5 MG/KG ,0, 2, 6 THEN EVERY 8 WEEKS (INCOMPLETE INFUSION)
     Route: 042
     Dates: start: 20220228, end: 20220228
  9. ASACOL [Concomitant]
     Active Substance: MESALAMINE
     Dosage: UNK
  10. MESALAMINE [Concomitant]
     Active Substance: MESALAMINE
     Dosage: UNK

REACTIONS (20)
  - Carpal tunnel syndrome [Unknown]
  - Migraine [Unknown]
  - Fatigue [Unknown]
  - Asthenia [Unknown]
  - Acne [Not Recovered/Not Resolved]
  - Pruritus [Unknown]
  - Nausea [Unknown]
  - Arthralgia [Unknown]
  - Throat tightness [Recovered/Resolved]
  - Dyspnoea [Recovered/Resolved]
  - Oropharyngeal discomfort [Recovered/Resolved]
  - Erythema [Recovered/Resolved]
  - Agitation [Recovered/Resolved]
  - Anxiety [Recovered/Resolved]
  - Throat tightness [Recovered/Resolved]
  - Erythema [Recovering/Resolving]
  - Hypersensitivity [Unknown]
  - Off label use [Unknown]
  - Intentional product use issue [Unknown]
  - Incorrect dose administered [Unknown]

NARRATIVE: CASE EVENT DATE: 20210916
